FAERS Safety Report 7079395-9 (Version None)
Quarter: 2010Q4

REPORT INFORMATION
  Report Type: 
  Country: None (occurrence: None)
  Receive Date: 20101102
  Receipt Date: 20101022
  Transmission Date: 20110411
  Serious: Yes (Other)
  Sender: FDA-Public Use
  Company Number: US-JNJFOC-20101007044

PATIENT
  Sex: Male
  Weight: 64.41 kg

DRUGS (3)
  1. REMICADE [Suspect]
     Indication: CROHN'S DISEASE
     Dosage: RECEIVED 1 INFUSION
     Route: 042
  2. HUMIRA [Concomitant]
     Indication: CROHN'S DISEASE
  3. FOLIC ACID [Concomitant]
     Indication: CROHN'S DISEASE

REACTIONS (1)
  - MALIGNANT MELANOMA IN SITU [None]
